FAERS Safety Report 19850605 (Version 2)
Quarter: 2023Q4

REPORT INFORMATION
  Report Type: Spontaneous
  Country: US (occurrence: US)
  Receive Date: 20210917
  Receipt Date: 20231213
  Transmission Date: 20240109
  Serious: Yes (Other)
  Sender: FDA-Public Use
  Company Number: US-REGENERON PHARMACEUTICALS, INC.-2021-85415

PATIENT
  Sex: Female

DRUGS (1)
  1. EYLEA [Suspect]
     Active Substance: AFLIBERCEPT
     Indication: Retinal vein occlusion
     Dosage: UNK, FORMULATION: UNKNOWN
     Dates: end: 2021

REACTIONS (4)
  - Blindness transient [Recovered/Resolved]
  - Eye infection [Unknown]
  - Malaise [Unknown]
  - Drug hypersensitivity [Unknown]
